FAERS Safety Report 23978848 (Version 1)
Quarter: 2024Q2

REPORT INFORMATION
  Report Type: Spontaneous
  Country: TH (occurrence: TH)
  Receive Date: 20240615
  Receipt Date: 20240615
  Transmission Date: 20240716
  Serious: Yes (Hospitalization, Other)
  Sender: FDA-Public Use
  Company Number: TH-SA-SAC20240612001015

PATIENT
  Age: 51 Year
  Sex: Female
  Weight: 167 kg

DRUGS (15)
  1. ISONIAZID [Suspect]
     Active Substance: ISONIAZID
     Indication: Tuberculosis of peripheral lymph nodes
     Dosage: 300 MG, QD
     Route: 048
     Dates: start: 20231123
  2. RIFAMPIN [Suspect]
     Active Substance: RIFAMPIN
     Indication: Tuberculosis of peripheral lymph nodes
     Dosage: 600 MG, QD
     Dates: start: 20231123
  3. PYRIDOXINE [Suspect]
     Active Substance: PYRIDOXINE
     Indication: Tuberculosis of peripheral lymph nodes
     Dosage: 100 MG, QD
     Dates: start: 20231123
  4. PYRAZINAMIDE [Suspect]
     Active Substance: PYRAZINAMIDE
     Indication: Tuberculosis of peripheral lymph nodes
     Dosage: 1600 MG OD,
     Dates: start: 20231123
  5. ETHAMBUTOL [Suspect]
     Active Substance: ETHAMBUTOL HYDROCHLORIDE
     Indication: Tuberculosis of peripheral lymph nodes
     Dosage: 1300 MG, QD
     Dates: start: 20231123
  6. ETHAMBUTOL [Suspect]
     Active Substance: ETHAMBUTOL HYDROCHLORIDE
     Dosage: 1200 MG, QD
  7. LEVOFLOXACIN [Suspect]
     Active Substance: LEVOFLOXACIN
     Indication: Tuberculosis of peripheral lymph nodes
     Dosage: 750 MG, QD
  8. TOLPERISONE [Concomitant]
     Active Substance: TOLPERISONE
     Dosage: 50 MG, BID
  9. IVERMECTIN [Concomitant]
     Active Substance: IVERMECTIN
     Dosage: 12 MG, QD
  10. ALBENDAZOLE [Concomitant]
     Active Substance: ALBENDAZOLE
     Dosage: 400 MG, QD
  11. PIPERACILLIN [Concomitant]
     Active Substance: PIPERACILLIN
     Dosage: 4.5 G, QID
  12. FILGRASTIM [Concomitant]
     Active Substance: FILGRASTIM
     Dosage: 300 UG
     Route: 058
  13. ENALAPRIL [Concomitant]
     Active Substance: ENALAPRIL
     Indication: Hypertension
     Dosage: UNK, QD
     Route: 048
     Dates: start: 20210729
  14. DOLUTEGRAVIR\LAMIVUDINE\TENOFOVIR DISOPROXIL FUMARATE [Concomitant]
     Active Substance: DOLUTEGRAVIR\LAMIVUDINE\TENOFOVIR DISOPROXIL FUMARATE
     Indication: HIV infection
     Dosage: UNK, QD
     Route: 048
     Dates: start: 20221110
  15. DOLUTEGRAVIR [Concomitant]
     Active Substance: DOLUTEGRAVIR
     Dosage: 50 MG, QD

REACTIONS (8)
  - Immune thrombocytopenia [Unknown]
  - Leukopenia [Unknown]
  - Blood uric acid increased [Unknown]
  - Blood creatinine increased [Unknown]
  - Alanine aminotransferase increased [Unknown]
  - Dengue virus test positive [Unknown]
  - Staphylococcus test positive [Unknown]
  - Dizziness [Unknown]

NARRATIVE: CASE EVENT DATE: 20240509
